FAERS Safety Report 10643023 (Version 4)
Quarter: 2016Q4

REPORT INFORMATION
  Report Type: Report from Study
  Country: US (occurrence: US)
  Receive Date: 20141210
  Receipt Date: 20161116
  Transmission Date: 20170206
  Serious: Yes (Hospitalization)
  Sender: FDA-Public Use
  Company Number: US-SA-2014SA167936

PATIENT
  Age: 55 Year
  Sex: Female

DRUGS (6)
  1. AMITRIPTYLINE [Concomitant]
     Active Substance: AMITRIPTYLINE
  2. AUBAGIO [Suspect]
     Active Substance: TERIFLUNOMIDE
     Indication: MULTIPLE SCLEROSIS
     Route: 048
     Dates: start: 20141124
  3. LYRICA [Concomitant]
     Active Substance: PREGABALIN
  4. AUBAGIO [Suspect]
     Active Substance: TERIFLUNOMIDE
     Indication: MULTIPLE SCLEROSIS
     Route: 048
     Dates: start: 201509
  5. BACLOFEN. [Concomitant]
     Active Substance: BACLOFEN
  6. GABAPENTIN. [Concomitant]
     Active Substance: GABAPENTIN

REACTIONS (5)
  - Hypertensive crisis [Unknown]
  - Memory impairment [Unknown]
  - Fall [Unknown]
  - Ankle fracture [Unknown]
  - Headache [Unknown]

NARRATIVE: CASE EVENT DATE: 201411
